FAERS Safety Report 17414248 (Version 3)
Quarter: 2020Q2

REPORT INFORMATION
  Report Type: Spontaneous
  Country: ES (occurrence: ES)
  Receive Date: 20200213
  Receipt Date: 20200603
  Transmission Date: 20200713
  Serious: No
  Sender: FDA-Public Use
  Company Number: ES-PFIZER INC-2020059724

PATIENT
  Age: 49 Year
  Sex: Female
  Weight: 69 kg

DRUGS (10)
  1. PRIMPERAN [Concomitant]
     Active Substance: METOCLOPRAMIDE HYDROCHLORIDE
  2. FORTASEC [LOPERAMIDE] [Concomitant]
     Active Substance: LOPERAMIDE
  3. AMITRIPTYLINE [Concomitant]
     Active Substance: AMITRIPTYLINE
  4. TRASTUZUMAB. [Suspect]
     Active Substance: TRASTUZUMAB
     Indication: BREAST NEOPLASM
  5. PERTUZUMAB. [Concomitant]
     Active Substance: PERTUZUMAB
     Route: 065
  6. CAPECITABINE. [Suspect]
     Active Substance: CAPECITABINE
     Indication: BREAST NEOPLASM
     Route: 048
  7. PREDNISONE. [Concomitant]
     Active Substance: PREDNISONE
  8. LAPATINIB [Suspect]
     Active Substance: LAPATINIB
     Indication: BREAST NEOPLASM
     Route: 065
  9. XELODA [Concomitant]
     Active Substance: CAPECITABINE
     Route: 048
  10. HERCEPTIN [Suspect]
     Active Substance: TRASTUZUMAB
     Indication: BREAST NEOPLASM
     Route: 065

REACTIONS (6)
  - Neoplasm progression [Unknown]
  - Toxicity to various agents [Unknown]
  - Headache [Unknown]
  - Muscle contracture [Unknown]
  - Skin toxicity [Unknown]
  - Neoplasm recurrence [Unknown]
